FAERS Safety Report 10276143 (Version 1)
Quarter: 2014Q3

REPORT INFORMATION
  Report Type: Spontaneous
  Country: FR (occurrence: FR)
  Receive Date: 20140703
  Receipt Date: 20140703
  Transmission Date: 20150326
  Serious: Yes (Other)
  Sender: FDA-Public Use
  Company Number: FR-ASTRAZENECA-2014SE46535

PATIENT
  Age: 20110 Day
  Sex: Male

DRUGS (20)
  1. BACTRIM [Suspect]
     Active Substance: SULFAMETHOXAZOLE\TRIMETHOPRIM
     Dosage: 3 DF 3 TIMES A DAY
     Route: 041
     Dates: start: 20140416, end: 20140418
  2. ROCEPHINE [Suspect]
     Active Substance: CEFTRIAXONE SODIUM
     Route: 041
     Dates: start: 20140416, end: 20140424
  3. MIDAZOLAM [Suspect]
     Active Substance: MIDAZOLAM\MIDAZOLAM HYDROCHLORIDE
     Route: 041
     Dates: start: 20140416, end: 20140425
  4. NOXAFIL [Suspect]
     Active Substance: POSACONAZOLE
     Route: 041
     Dates: start: 20140424
  5. SOLU-MEDROL [Suspect]
     Active Substance: METHYLPREDNISOLONE SODIUM SUCCINATE
     Route: 041
     Dates: start: 20140419, end: 20140524
  6. NIMBEX [Suspect]
     Active Substance: CISATRACURIUM BESYLATE
     Route: 041
     Dates: start: 20140418, end: 20140425
  7. LASILIX [Suspect]
     Active Substance: FUROSEMIDE
     Route: 041
     Dates: start: 20140427
  8. BACTRIM [Suspect]
     Active Substance: SULFAMETHOXAZOLE\TRIMETHOPRIM
     Dosage: 4 DF 3 TIMES A DAY
     Route: 041
     Dates: start: 20140418, end: 20140508
  9. NOZINAN [Suspect]
     Active Substance: LEVOMEPROMAZINE
     Route: 041
     Dates: start: 20140427, end: 20140505
  10. PROPOFOL. [Suspect]
     Active Substance: PROPOFOL
     Route: 041
     Dates: start: 20140420, end: 20140427
  11. NOREPINEPHRINE [Suspect]
     Active Substance: NOREPINEPHRINE\NOREPINEPHRINE BITARTRATE
     Route: 041
     Dates: start: 20140416, end: 20140425
  12. HUMALOG [Concomitant]
     Active Substance: INSULIN LISPRO
  13. ROVAMYCINE [Suspect]
     Active Substance: SPIRAMYCIN
     Dosage: 3 MIU 3 TIMES A DAY
     Route: 041
     Dates: start: 20140416, end: 20140419
  14. VFEND [Suspect]
     Active Substance: VORICONAZOLE
     Route: 041
     Dates: start: 20140424
  15. INEXIUM [Suspect]
     Active Substance: ESOMEPRAZOLE
     Route: 041
     Dates: start: 20140419, end: 20140426
  16. SUFENTANIL [Suspect]
     Active Substance: SUFENTANIL
     Route: 041
     Dates: start: 20140416, end: 20140425
  17. EUPANTOL [Suspect]
     Active Substance: PANTOPRAZOLE SODIUM
     Route: 041
     Dates: start: 20140416, end: 20140424
  18. LOVENOX [Suspect]
     Active Substance: ENOXAPARIN SODIUM
     Route: 058
     Dates: start: 20140417
  19. UNFRACTIONED HEPARIN [Concomitant]
  20. CATAPRESSAN [Suspect]
     Active Substance: CLONIDINE
     Route: 041
     Dates: start: 20140419, end: 20140430

REACTIONS (2)
  - Deafness unilateral [Not Recovered/Not Resolved]
  - Hepatic enzyme increased [Recovered/Resolved]

NARRATIVE: CASE EVENT DATE: 20140421
